FAERS Safety Report 24463356 (Version 1)
Quarter: 2024Q4

REPORT INFORMATION
  Report Type: Report from Study
  Country: US (occurrence: US)
  Receive Date: 20241018
  Receipt Date: 20241018
  Transmission Date: 20250114
  Serious: No
  Sender: ROCHE
  Company Number: US-ROCHE-2842118

PATIENT
  Age: 78 Year
  Sex: Female
  Weight: 69.85 kg

DRUGS (7)
  1. XOLAIR [Suspect]
     Active Substance: OMALIZUMAB
     Indication: Urticaria
     Dosage: 150 MG SHOT IN THE BACK OF EACH ARM? FORM OF ADMIN: SHOT
     Route: 065
     Dates: start: 20191004
  2. XOLAIR [Suspect]
     Active Substance: OMALIZUMAB
     Indication: Idiopathic urticaria
     Route: 065
     Dates: start: 201909
  3. CETIRIZINE HYDROCHLORIDE [Concomitant]
     Active Substance: CETIRIZINE HYDROCHLORIDE
     Indication: Urticaria
     Dosage: 10MG PILLS-2 PILLS IN MORNING AND 2 PILLS AT NIGHT
     Route: 048
  4. METOPROLOL [Concomitant]
     Active Substance: METOPROLOL
     Indication: Mitral valve prolapse
     Route: 048
     Dates: start: 1992
  5. LOVASTATIN [Concomitant]
     Active Substance: LOVASTATIN
     Indication: Blood cholesterol increased
     Route: 048
     Dates: start: 1992
  6. ASPIRIN [Concomitant]
     Active Substance: ASPIRIN
     Dosage: FREQUENCY TEXT:TAKES IN THE EVENING
     Route: 048
  7. FISH OIL [Concomitant]
     Active Substance: FISH OIL
     Dosage: TAKES IN THE EVENING
     Route: 048

REACTIONS (2)
  - Urticaria [Not Recovered/Not Resolved]
  - Urticaria [Recovered/Resolved]

NARRATIVE: CASE EVENT DATE: 20190901
